FAERS Safety Report 9681463 (Version 3)
Quarter: 2014Q2

REPORT INFORMATION
  Report Type: Report from Study
  Country: US (occurrence: US)
  Receive Date: 20131111
  Receipt Date: 20140611
  Transmission Date: 20141212
  Serious: Yes (Death, Hospitalization)
  Sender: FDA-Public Use
  Company Number: US-BRISTOL-MYERS SQUIBB COMPANY-15445117

PATIENT
  Age: 66 Year
  Sex: Male

DRUGS (29)
  1. IPILIMUMAB [Suspect]
     Indication: METASTATIC MALIGNANT MELANOMA
     Dosage: NO OF COURSES:2, ?195MG
     Route: 042
     Dates: start: 20101203, end: 20101227
  2. ATENOLOL TABS [Concomitant]
     Dosage: ATENOLOL 25 MG TAB TAKEN 1?50MG
     Route: 048
  3. ATIVAN [Concomitant]
     Indication: NAUSEA
     Dosage: TABS,BID,30 TABLETS
     Route: 048
  4. COMPAZINE [Concomitant]
     Indication: NAUSEA
     Dosage: 10 MG TAB TAKE 1,Q6H#60 TABS
     Route: 048
  5. DEXAMETHASONE [Concomitant]
     Dosage: 2MG TABS TAKE 1,#60 TABS?ALSO TAKEN 1MG TABS
     Route: 048
  6. FAMOTIDINE TABS 20 MG [Concomitant]
     Dosage: 20 MG TABS TAKE 1,PO BIDX30 DAYS#60 TABS
     Route: 048
  7. KEPPRA [Concomitant]
     Dosage: 500 MG TABS TAKE 1.5,#90 TABS
     Route: 048
  8. LISINOPRIL [Concomitant]
     Dosage: 10 MG TAB TAKE 1,#30 TABS
     Route: 048
  9. MULTIVITAMINS [Concomitant]
     Dosage: 1 DF = 1TAB
     Route: 048
  10. TRIAMCINOLONE ACETONIDE CREAM [Concomitant]
     Dosage: #45GM
     Route: 061
  11. TYLENOL [Concomitant]
     Indication: PAIN
     Dosage: 325 MG TAB TAKE 1,Q4H?650MG
     Route: 048
  12. TYLENOL [Concomitant]
     Indication: HEADACHE
     Dosage: 325 MG TAB TAKE 1,Q4H?650MG
     Route: 048
  13. VITAMIN D3 [Concomitant]
     Dosage: 1 DF = 2000 UNITS,TABS
     Route: 048
  14. ZOFRAN [Concomitant]
     Dosage: 8MG TAB TAKE1,#30 TABS
     Route: 048
  15. ADVAIR DISKUS [Concomitant]
     Dosage: 1DF=100/50 UNITS NOT MENTIONED
     Route: 055
  16. CELEXA [Concomitant]
     Dosage: 10MG TAB,30 TABS
     Route: 048
  17. OXYCODONE [Concomitant]
     Indication: PAIN
     Dosage: 5MG TABS,Q4H,#100 TABS CONTROLED RELEASE 10MG ORAL BID
     Route: 048
  18. SPIRIVA [Concomitant]
     Dosage: 18MCG CAPS
     Route: 055
  19. KEFLEX [Concomitant]
     Route: 048
  20. COLACE [Concomitant]
     Route: 048
  21. ERGOCALCIFEROL [Concomitant]
     Dosage: 1 DF:50,000 UNITS
     Route: 048
  22. SENNOSIDES [Concomitant]
     Dosage: 1 DF: 2 TAB
     Route: 048
  23. POLYETHYLENE GLYCOL [Concomitant]
     Route: 048
  24. CHOLECALCIFEROL [Concomitant]
     Dosage: 1 DF: 4000 UNITS
     Route: 048
  25. ACETAMINOPHEN [Concomitant]
     Route: 048
  26. LEVETIRACETAM [Concomitant]
     Route: 048
  27. PROCHLORPERAZINE MALEATE [Concomitant]
     Route: 048
  28. CITALOPRAM [Concomitant]
     Route: 048
  29. LORAZEPAM [Concomitant]
     Route: 048

REACTIONS (4)
  - Malignant neoplasm progression [Fatal]
  - Dyspnoea [Recovered/Resolved with Sequelae]
  - Abdominal pain [Recovered/Resolved with Sequelae]
  - Pulmonary embolism [Recovered/Resolved with Sequelae]
